FAERS Safety Report 4690825-X (Version None)
Quarter: 2005Q2

REPORT INFORMATION
  Report Type: 
  Country: None (occurrence: None)
  Receive Date: 20050613
  Receipt Date: 20050530
  Transmission Date: 20051028
  Serious: Yes (Other)
  Sender: FDA-Public Use
  Company Number: 2005083118

PATIENT
  Sex: 0

DRUGS (1)
  1. ATARAX [Suspect]
     Indication: ILL-DEFINED DISORDER
     Dosage: PARENTERAL
     Route: 051

REACTIONS (1)
  - ELECTROCARDIOGRAM QT PROLONGED [None]
